FAERS Safety Report 6043066-8 (Version None)
Quarter: 2009Q1

REPORT INFORMATION
  Report Type: 
  Country: None (occurrence: None)
  Receive Date: 20090119
  Receipt Date: 20090113
  Transmission Date: 20090719
  Serious: Yes (Other)
  Sender: FDA-Public Use
  Company Number: US-BAYER-200840975NA

PATIENT
  Sex: Male

DRUGS (1)
  1. AVELOX [Suspect]
     Indication: SINUSITIS
     Dosage: AS USED: 400 MG  UNIT DOSE: 400 MG
     Route: 048

REACTIONS (8)
  - ANAPHYLACTIC REACTION [None]
  - DYSPNOEA [None]
  - FLUSHING [None]
  - PRURITUS [None]
  - SWELLING FACE [None]
  - TINNITUS [None]
  - URTICARIA [None]
  - WHEEZING [None]
